FAERS Safety Report 16461241 (Version 2)
Quarter: 2019Q4

REPORT INFORMATION
  Report Type: Report from Study
  Country: US (occurrence: US)
  Receive Date: 20190620
  Receipt Date: 20191114
  Transmission Date: 20200122
  Serious: Yes (Hospitalization)
  Sender: FDA-Public Use
  Company Number: US-ACTELION-A-NJ2019-190063

PATIENT
  Age: 36 Year
  Sex: Male
  Weight: 79.37 kg

DRUGS (6)
  1. OPSUMIT [Concomitant]
     Active Substance: MACITENTAN
  2. MORPHINE [Suspect]
     Active Substance: MORPHINE
     Indication: PRODUCT USED FOR UNKNOWN INDICATION
     Route: 065
  3. VELETRI [Suspect]
     Active Substance: EPOPROSTENOL
     Indication: PULMONARY HYPERTENSION
     Dosage: 12.1 NG/KG, PER MIN
     Route: 042
  4. VELETRI [Suspect]
     Active Substance: EPOPROSTENOL
     Dosage: 18 NG/KG, PER MIN
     Route: 042
  5. VELETRI [Suspect]
     Active Substance: EPOPROSTENOL
     Dosage: 19.5 NG/KG PER MIN
     Route: 042
  6. ADEMPAS [Concomitant]
     Active Substance: RIOCIGUAT
     Dosage: UNK
     Dates: start: 201901

REACTIONS (17)
  - Sinusitis [Unknown]
  - Oxygen saturation decreased [Unknown]
  - Pain [Recovering/Resolving]
  - Headache [Unknown]
  - Pulmonary hypertension [Unknown]
  - General physical health deterioration [Unknown]
  - Dyspnoea [Unknown]
  - Vomiting [Unknown]
  - Withdrawal syndrome [Recovering/Resolving]
  - Respiratory disorder [Unknown]
  - Product dose omission [Unknown]
  - Device physical property issue [Recovered/Resolved]
  - Haemoptysis [Unknown]
  - Diarrhoea [Unknown]
  - Nausea [Unknown]
  - Treatment noncompliance [Unknown]
  - Confusional state [Unknown]

NARRATIVE: CASE EVENT DATE: 20190606
